FAERS Safety Report 10076748 (Version 1)
Quarter: 2014Q2

REPORT INFORMATION
  Report Type: Spontaneous
  Country: US (occurrence: US)
  Receive Date: 20140414
  Receipt Date: 20140414
  Transmission Date: 20141212
  Serious: Yes (Hospitalization)
  Sender: FDA-Public Use
  Company Number: US-B.I. PHARMACEUTICALS,INC./RIDGEFIELD-2014-BI-16159BP

PATIENT
  Age: 71 Year
  Sex: Female
  Weight: 69 kg

DRUGS (7)
  1. PRADAXA [Suspect]
     Indication: FACTOR V LEIDEN MUTATION
     Dosage: 300 MG
     Route: 048
     Dates: start: 2012, end: 201307
  2. PRADAXA [Suspect]
     Dosage: 300 MG
     Route: 048
     Dates: start: 201307, end: 201312
  3. PRADAXA [Suspect]
     Dosage: 300 MG
     Route: 048
     Dates: start: 201312, end: 201402
  4. PRADAXA [Suspect]
     Dosage: 300 MG
     Route: 048
     Dates: start: 201402
  5. OMEPRAZOLE [Concomitant]
     Indication: PRODUCT USED FOR UNKNOWN INDICATION
     Route: 048
  6. FUROSEMIDE [Concomitant]
     Indication: PRODUCT USED FOR UNKNOWN INDICATION
     Route: 048
  7. SULFATE [Concomitant]
     Indication: PRODUCT USED FOR UNKNOWN INDICATION
     Route: 048

REACTIONS (11)
  - Arterial haemorrhage [Recovered/Resolved]
  - Contusion [Not Recovered/Not Resolved]
  - Thrombosis [Unknown]
  - Weight increased [Not Recovered/Not Resolved]
  - Large intestine polyp [Recovered/Resolved]
  - Limb injury [Recovered/Resolved]
  - Pulse abnormal [Unknown]
  - Pain in extremity [Unknown]
  - Incision site pain [Unknown]
  - Haematoma [Unknown]
  - Off label use [Unknown]
